FAERS Safety Report 8312092-8 (Version None)
Quarter: 2012Q2

REPORT INFORMATION
  Report Type: 
  Country: None (occurrence: None)
  Receive Date: 20120425
  Receipt Date: 20120420
  Transmission Date: 20120825
  Serious: Yes (Hospitalization, Disabling)
  Sender: FDA-Public Use
  Company Number: JP-B.I. PHARMACEUTICALS,INC./RIDGEFIELD-2012-BP-05747NB

PATIENT
  Sex: Female
  Weight: 39.7 kg

DRUGS (8)
  1. PRADAXA [Suspect]
     Indication: ATRIAL FIBRILLATION
     Dosage: 300 MG
     Route: 048
     Dates: start: 20110622, end: 20120217
  2. PRADAXA [Suspect]
     Dosage: 220 MG
     Route: 065
     Dates: start: 20110817
  3. CEREKINON [Concomitant]
     Indication: GASTRITIS
     Dosage: 600 MG
     Route: 048
     Dates: start: 20110104
  4. SEVEN EP [Concomitant]
     Indication: GASTRITIS
     Route: 048
     Dates: start: 20090319
  5. DIOVAN [Concomitant]
     Indication: HYPERTENSION
     Dosage: 80 MG
     Route: 048
     Dates: start: 20080123
  6. CEFAZOLIN SODIUM [Concomitant]
     Indication: GASTRITIS
     Route: 048
     Dates: start: 20090319
  7. ZOLPIDEM [Concomitant]
     Indication: INSOMNIA
     Dosage: 10 MG
     Route: 048
     Dates: start: 20100525
  8. LANIRAPID [Concomitant]
     Indication: ATRIAL FIBRILLATION
     Dosage: 0.05 MG
     Route: 048
     Dates: start: 20080123

REACTIONS (3)
  - HEMIPARESIS [None]
  - CEREBRAL INFARCTION [None]
  - APHASIA [None]
